FAERS Safety Report 21940091 (Version 7)
Quarter: 2025Q2

REPORT INFORMATION
  Report Type: Spontaneous
  Country: FR (occurrence: FR)
  Receive Date: 20230201
  Receipt Date: 20250423
  Transmission Date: 20250717
  Serious: Yes (Hospitalization, Other)
  Sender: ALEXION PHARMACEUTICALS
  Company Number: FR-ALXN-A202300126

PATIENT
  Age: 36 Year
  Weight: 61 kg

DRUGS (11)
  1. SOLIRIS [Suspect]
     Active Substance: ECULIZUMAB
     Indication: Myasthenia gravis
     Route: 065
  2. ULTOMIRIS [Suspect]
     Active Substance: RAVULIZUMAB-CWVZ
     Indication: Myasthenia gravis
     Route: 065
  3. ULTOMIRIS [Suspect]
     Active Substance: RAVULIZUMAB-CWVZ
     Route: 065
  4. ULTOMIRIS [Suspect]
     Active Substance: RAVULIZUMAB-CWVZ
     Route: 065
  5. SOLUPRED                           /00016201/ [Concomitant]
     Indication: Muscular weakness
     Dosage: 20 MG, QD
     Route: 065
  6. MESTINON [Concomitant]
     Active Substance: PYRIDOSTIGMINE BROMIDE
     Indication: Muscular weakness
     Dosage: 60 MG, QID
     Route: 065
  7. CALCIUM\CHOLECALCIFEROL [Concomitant]
     Active Substance: CALCIUM\CHOLECALCIFEROL
     Indication: Muscular weakness
     Dosage: UNK, BID
     Route: 065
  8. ORACILLINE                         /00001801/ [Concomitant]
     Indication: Muscular weakness
     Dosage: 1 MUI, BID
     Route: 065
  9. CLOMID [Concomitant]
     Active Substance: CLOMIPHENE CITRATE
     Indication: In vitro fertilisation
     Route: 065
  10. ESTRADIOL [Concomitant]
     Active Substance: ESTRADIOL
     Indication: In vitro fertilisation
     Route: 065
  11. DUPHASTON [Concomitant]
     Active Substance: DYDROGESTERONE
     Indication: In vitro fertilisation
     Route: 065

REACTIONS (2)
  - Myasthenia gravis [Recovering/Resolving]
  - Drug ineffective [Unknown]
